FAERS Safety Report 7107785-4 (Version None)
Quarter: 2010Q4

REPORT INFORMATION
  Report Type: 
  Country: None (occurrence: None)
  Receive Date: 20101117
  Receipt Date: 20101104
  Transmission Date: 20110411
  Serious: Yes (Other)
  Sender: FDA-Public Use
  Company Number: PHHY2010CA51798

PATIENT
  Sex: Female

DRUGS (14)
  1. ACLASTA [Suspect]
     Indication: OSTEOPOROSIS
     Dosage: 5 MG
     Dates: start: 20091027
  2. NITRODERM [Concomitant]
  3. LYRICA [Concomitant]
  4. NEXIUM [Concomitant]
  5. DIOVAN [Concomitant]
  6. VITAMIN B-12 [Concomitant]
  7. ASPIRIN [Concomitant]
  8. CELEXA [Concomitant]
  9. TYLENOL [Concomitant]
  10. NAPROXEN [Concomitant]
  11. LEVOCARB [Concomitant]
  12. MIRAPEX [Concomitant]
  13. SENNOSIDE [Concomitant]
  14. FERINSOL [Concomitant]

REACTIONS (5)
  - ARTHRALGIA [None]
  - DEVICE DIFFICULT TO USE [None]
  - GINGIVAL SWELLING [None]
  - NEURALGIA [None]
  - ORAL PAIN [None]
